FAERS Safety Report 26133215 (Version 1)
Quarter: 2025Q4

REPORT INFORMATION
  Report Type: Spontaneous
  Country: US (occurrence: US)
  Receive Date: 20251209
  Receipt Date: 20251209
  Transmission Date: 20260118
  Serious: Yes (Life-Threatening, Hospitalization)
  Sender: Onesource Specialty Pharma
  Company Number: US-STRIDES ARCOLAB LIMITED-2025OS000343

PATIENT
  Age: 52 Year
  Sex: Female

DRUGS (11)
  1. MIDAZOLAM [Suspect]
     Active Substance: MIDAZOLAM
     Indication: Agitation
     Dosage: RECEIVED HIGH DOSE MIDAZOLAM
     Route: 065
  2. KETAMINE [Suspect]
     Active Substance: KETAMINE
     Indication: Agitation
     Dosage: 4 MILLIGRAM/KILOGRAM
     Route: 042
  3. KETAMINE [Suspect]
     Active Substance: KETAMINE
     Dosage: UNK
     Route: 042
  4. AZATHIOPRINE [Concomitant]
     Active Substance: AZATHIOPRINE
     Indication: Connective tissue disorder
     Dosage: UNK
     Route: 065
  5. AZATHIOPRINE [Concomitant]
     Active Substance: AZATHIOPRINE
     Indication: Urticaria
  6. AZATHIOPRINE [Concomitant]
     Active Substance: AZATHIOPRINE
     Indication: Antiphospholipid syndrome
  7. PREDNISONE [Concomitant]
     Active Substance: PREDNISONE
     Indication: Connective tissue disorder
     Dosage: UNK
     Route: 065
  8. PREDNISONE [Concomitant]
     Active Substance: PREDNISONE
     Indication: Urticaria
     Dosage: UNK, TAPER
     Route: 065
  9. PREDNISONE [Concomitant]
     Active Substance: PREDNISONE
     Indication: Antiphospholipid syndrome
  10. PYRIDOSTIGMINE [Concomitant]
     Active Substance: PYRIDOSTIGMINE
     Indication: Myasthenia gravis
     Dosage: UNK
     Route: 065
  11. .DELTA.9-TETRAHYDROCANNABINOL\HERBALS [Concomitant]
     Active Substance: .DELTA.9-TETRAHYDROCANNABINOL\HERBALS
     Indication: Product used for unknown indication
     Dosage: RECEIVED DRONABINOL TINCTURE
     Route: 065

REACTIONS (1)
  - Drug ineffective for unapproved indication [Unknown]
